FAERS Safety Report 4748754-9 (Version None)
Quarter: 2005Q3

REPORT INFORMATION
  Report Type: 
  Country: None (occurrence: None)
  Receive Date: 20050817
  Receipt Date: 20050804
  Transmission Date: 20060218
  Serious: Yes (Hospitalization)
  Sender: FDA-Public Use
  Company Number: 2005BI013092

PATIENT
  Age: 42 Year
  Sex: Female
  Weight: 56.6996 kg

DRUGS (4)
  1. AVONEX [Suspect]
     Indication: MULTIPLE SCLEROSIS
     Dosage: QW; IM
     Route: 030
     Dates: start: 20040101, end: 20040101
  2. AVONEX [Suspect]
     Indication: MULTIPLE SCLEROSIS
     Dosage: 30 UG; QW; IM
     Route: 030
     Dates: start: 20040101
  3. NARDIL [Concomitant]
  4. KLONOPIN [Concomitant]

REACTIONS (8)
  - DERMATITIS CONTACT [None]
  - DRY SKIN [None]
  - EXPOSURE TO TOXIC AGENT [None]
  - FURUNCLE [None]
  - INJECTION SITE PAIN [None]
  - PAIN [None]
  - UNEVALUABLE EVENT [None]
  - WOUND [None]
